FAERS Safety Report 23819692 (Version 1)
Quarter: 2024Q2

REPORT INFORMATION
  Report Type: Spontaneous
  Country: RS (occurrence: RS)
  Receive Date: 20240506
  Receipt Date: 20240506
  Transmission Date: 20240716
  Serious: Yes (Other)
  Sender: FDA-Public Use
  Company Number: None

PATIENT
  Sex: Female

DRUGS (1)
  1. KEPPRA [Suspect]
     Active Substance: LEVETIRACETAM
     Indication: Epilepsy
     Dosage: UNK
     Route: 048

REACTIONS (7)
  - Mental disorder [Recovering/Resolving]
  - Disturbance in attention [Recovering/Resolving]
  - Memory impairment [Recovering/Resolving]
  - Learning disorder [Recovering/Resolving]
  - Aggression [Recovering/Resolving]
  - Fear [Recovering/Resolving]
  - Psychiatric decompensation [Recovering/Resolving]
